FAERS Safety Report 5974318-5 (Version None)
Quarter: 2008Q4

REPORT INFORMATION
  Report Type: 
  Country: None (occurrence: None)
  Receive Date: 20081201
  Receipt Date: 20081120
  Transmission Date: 20090506
  Serious: Yes (Other)
  Sender: FDA-Public Use
  Company Number: JP-PFIZER INC-2008091639

PATIENT
  Sex: Male

DRUGS (6)
  1. CHAMPIX [Suspect]
     Indication: SMOKING CESSATION THERAPY
     Route: 048
     Dates: start: 20081006, end: 20081029
  2. LIMAS [Concomitant]
     Route: 048
     Dates: start: 19930213
  3. TEGRETOL [Concomitant]
     Route: 048
     Dates: start: 19930213
  4. HALOPERIDOL [Concomitant]
     Route: 048
     Dates: start: 19941028
  5. BIPERIDEN HYDROCHLORIDE TAB [Concomitant]
     Route: 048
     Dates: start: 20030825
  6. BROTIZOLAM [Concomitant]
     Route: 048
     Dates: start: 20050803

REACTIONS (2)
  - DEPRESSION [None]
  - HALLUCINATION [None]
